FAERS Safety Report 10072955 (Version 1)
Quarter: 2014Q2

REPORT INFORMATION
  Report Type: Spontaneous
  Country: FR (occurrence: FR)
  Receive Date: 20140411
  Receipt Date: 20140411
  Transmission Date: 20141212
  Serious: Yes (Hospitalization)
  Sender: FDA-Public Use
  Company Number: FR-BRISTOL-MYERS SQUIBB COMPANY-20596326

PATIENT
  Age: 56 Year
  Sex: Male

DRUGS (9)
  1. ACTISKENAN CAPS 5 MG [Suspect]
     Dosage: RECENT DOSE 11DEC13
     Route: 048
     Dates: end: 20131211
  2. METFORMIN HCL [Suspect]
     Indication: TYPE 1 DIABETES MELLITUS
     Dosage: RECENT DOSE 25OCT13
     Route: 048
     Dates: end: 20131025
  3. COAPROVEL [Suspect]
     Indication: HYPERTENSION
     Dosage: RECENT DOSE 25OCT13
     Route: 048
     Dates: end: 20131025
  4. VENLAFAXINE HCL [Suspect]
     Dosage: RECENT DOSE 25OCT13
     Route: 048
     Dates: end: 20131025
  5. IMUREL [Suspect]
     Indication: AUTOIMMUNE HEPATITIS
     Dosage: RECENT DOSE 25OCT13
     Dates: start: 201211, end: 20131025
  6. LEVEMIR [Suspect]
     Indication: TYPE 1 DIABETES MELLITUS
     Dosage: RECENT DOSE 5NOV13
     Route: 058
  7. AMLODIPINE [Suspect]
     Route: 048
  8. MIRTAZAPINE [Suspect]
     Route: 048
  9. SERESTA [Suspect]
     Route: 048

REACTIONS (2)
  - Leukopenia [Recovered/Resolved]
  - Thrombocytopenia [Not Recovered/Not Resolved]
